FAERS Safety Report 5420958-1 (Version None)
Quarter: 2007Q3

REPORT INFORMATION
  Report Type: 
  Country: None (occurrence: None)
  Receive Date: 20070821
  Receipt Date: 20070809
  Transmission Date: 20080115
  Serious: Yes (Other)
  Sender: FDA-Public Use
  Company Number: US-ROCHE-483328

PATIENT
  Age: 23 Year
  Sex: Female
  Weight: 74.8 kg

DRUGS (3)
  1. ACCUTANE [Suspect]
     Indication: ACNE
     Dosage: UNITS OF FORMUALTION STRENGTH UNSPECIFIED.
     Route: 048
     Dates: start: 19980209, end: 19980609
  2. ADVIL LIQUI-GELS [Concomitant]
     Indication: PAIN
     Dosage: DOSAGE REGIMEN REPORTED AS Q6HRS 2D PER MO
     Route: 048
     Dates: start: 19870101
  3. TYLENOL [Concomitant]
     Indication: PAIN

REACTIONS (15)
  - ANAEMIA [None]
  - BLOOD DISORDER [None]
  - BREAST CANCER [None]
  - COLITIS [None]
  - COLITIS ULCERATIVE [None]
  - CROHN'S DISEASE [None]
  - EMOTIONAL DISORDER [None]
  - EMOTIONAL DISTRESS [None]
  - FIBROUS HISTIOCYTOMA [None]
  - GASTROINTESTINAL TRACT ADENOMA [None]
  - ILL-DEFINED DISORDER [None]
  - INFLAMMATORY BOWEL DISEASE [None]
  - IRRITABLE BOWEL SYNDROME [None]
  - POLYP [None]
  - RECTAL HAEMORRHAGE [None]
